FAERS Safety Report 4441782-2 (Version None)
Quarter: 2004Q3

REPORT INFORMATION
  Report Type: 
  Country: None (occurrence: None)
  Receive Date: 20040907
  Receipt Date: 20040629
  Transmission Date: 20050211
  Serious: Yes (Life-Threatening, Hospitalization)
  Sender: FDA-Public Use
  Company Number: US-AMGEN-US081797

PATIENT
  Sex: Female

DRUGS (21)
  1. SENSIPAR [Suspect]
     Indication: HYPERPARATHYROIDISM SECONDARY
     Route: 048
     Dates: start: 20040603, end: 20040626
  2. WELLBUTRIN [Concomitant]
  3. CELEXA [Concomitant]
  4. ZEMPLAR (ABBOTT LABORATORIES) [Concomitant]
  5. ASPIRIN [Concomitant]
  6. DESONIDE [Concomitant]
  7. ELIDEL [Concomitant]
  8. FLUOCINONIDE [Concomitant]
  9. HUMALOG [Concomitant]
  10. KLONOPIN [Concomitant]
  11. MIACALCIN [Concomitant]
  12. NEPHRO-VITE [Concomitant]
  13. NEXIUM [Concomitant]
  14. PRAVACHOL [Concomitant]
  15. PREDNISONE [Concomitant]
  16. QUININE SULFATE [Concomitant]
  17. RENAGEL [Concomitant]
  18. SYNTHROID [Concomitant]
  19. VITAMIN B6 [Concomitant]
  20. EPOGEN [Concomitant]
     Indication: DIALYSIS
  21. LANTUS [Concomitant]

REACTIONS (19)
  - BLOOD GLUCOSE INCREASED [None]
  - BRADYARRHYTHMIA [None]
  - CARDIAC DISORDER [None]
  - CELLULITIS [None]
  - CHILLS [None]
  - DISEASE PROGRESSION [None]
  - DIZZINESS [None]
  - GLYCOSYLATED HAEMOGLOBIN INCREASED [None]
  - HYPOCALCAEMIA [None]
  - HYPOKALAEMIA [None]
  - HYPOMAGNESAEMIA [None]
  - MYOCARDIAL INFARCTION [None]
  - NAUSEA [None]
  - PYREXIA [None]
  - QRS AXIS ABNORMAL [None]
  - SLEEP APNOEA SYNDROME [None]
  - SYNCOPE [None]
  - TORSADE DE POINTES [None]
  - WHITE BLOOD CELL COUNT INCREASED [None]
